FAERS Safety Report 13100931 (Version 3)
Quarter: 2017Q2

REPORT INFORMATION
  Report Type: Spontaneous
  Country: DE (occurrence: DE)
  Receive Date: 20170110
  Receipt Date: 20170504
  Transmission Date: 20170830
  Serious: Yes (Hospitalization, Other)
  Sender: FDA-Public Use
  Company Number: DE-TEVA-727337ROM

PATIENT
  Age: 44 Year
  Sex: Male

DRUGS (9)
  1. CISPLATIN. [Suspect]
     Active Substance: CISPLATIN
     Indication: METASTASES TO ABDOMINAL CAVITY
  2. ETOPOSIDE. [Suspect]
     Active Substance: ETOPOSIDE
     Indication: METASTASES TO LYMPH NODES
  3. ETOPOSIDE. [Suspect]
     Active Substance: ETOPOSIDE
     Indication: METASTASES TO ABDOMINAL CAVITY
  4. BLEOMYCIN [Suspect]
     Active Substance: BLEOMYCIN SULFATE
     Indication: SEMINOMA
     Route: 065
  5. ETOPOSIDE. [Suspect]
     Active Substance: ETOPOSIDE
     Indication: SEMINOMA
     Route: 065
  6. BLEOMYCIN [Suspect]
     Active Substance: BLEOMYCIN SULFATE
     Indication: METASTASES TO ABDOMINAL CAVITY
  7. CISPLATIN. [Suspect]
     Active Substance: CISPLATIN
     Indication: SEMINOMA
     Route: 065
  8. CISPLATIN. [Suspect]
     Active Substance: CISPLATIN
     Indication: METASTASES TO LYMPH NODES
  9. BLEOMYCIN [Suspect]
     Active Substance: BLEOMYCIN SULFATE
     Indication: METASTASES TO LYMPH NODES

REACTIONS (10)
  - Cerebrovascular accident [Recovered/Resolved]
  - Thrombocytosis [Recovered/Resolved]
  - Hypomagnesaemia [Recovered/Resolved]
  - Hemiparesis [Recovered/Resolved]
  - Aphasia [Recovered/Resolved]
  - Cerebral artery stenosis [Recovered/Resolved]
  - Pulmonary embolism [Recovered/Resolved]
  - Sensory loss [Recovered/Resolved]
  - Facial paralysis [Recovered/Resolved]
  - Dysphagia [Recovered/Resolved]
